FAERS Safety Report 18364725 (Version 1)
Quarter: 2020Q4

REPORT INFORMATION
  Report Type: Spontaneous
  Country: GB (occurrence: GB)
  Receive Date: 20201009
  Receipt Date: 20201009
  Transmission Date: 20210114
  Serious: Yes (Hospitalization, Other)
  Sender: FDA-Public Use
  Company Number: GB-MICRO LABS LIMITED-ML2020-02979

PATIENT
  Age: 62 Year
  Sex: Male

DRUGS (1)
  1. VERAPAMIL HYDROCHLORIDE. [Suspect]
     Active Substance: VERAPAMIL HYDROCHLORIDE

REACTIONS (9)
  - Metabolic acidosis [Recovered/Resolved]
  - Hypotension [Recovering/Resolving]
  - Cardiac arrest [Unknown]
  - Brain injury [Not Recovered/Not Resolved]
  - Overdose [Unknown]
  - Respiratory acidosis [Recovered/Resolved]
  - Alanine aminotransferase increased [Unknown]
  - Hypocalcaemia [Unknown]
  - Bradycardia [Recovered/Resolved]
